FAERS Safety Report 7090125-7 (Version None)
Quarter: 2010Q4

REPORT INFORMATION
  Report Type: 
  Country: None (occurrence: None)
  Receive Date: 20101105
  Receipt Date: 20101105
  Transmission Date: 20110411
  Serious: Yes (Other)
  Sender: FDA-Public Use
  Company Number: None

PATIENT
  Sex: Female
  Weight: 95.709 kg

DRUGS (1)
  1. OXYCONTIN [Suspect]
     Dosage: 20MG AT BEDTIME

REACTIONS (3)
  - ABDOMINAL PAIN UPPER [None]
  - INSOMNIA [None]
  - PRODUCT FORMULATION ISSUE [None]
